FAERS Safety Report 8017521-5 (Version None)
Quarter: 2011Q4

REPORT INFORMATION
  Report Type: 
  Country: None (occurrence: None)
  Receive Date: 20111228
  Receipt Date: 20111228
  Transmission Date: 20120403
  Serious: Yes (Other)
  Sender: FDA-Public Use
  Company Number: None

PATIENT
  Sex: Female
  Weight: 88.4514 kg

DRUGS (1)
  1. LYRICA [Suspect]
     Indication: NEUROPATHY PERIPHERAL
     Dosage: 100 MG. 2 X DAY ORAL
     Route: 048
     Dates: start: 19900101, end: 20110101

REACTIONS (3)
  - VISUAL IMPAIRMENT [None]
  - BRONCHOPNEUMONIA [None]
  - GAIT DISTURBANCE [None]
